FAERS Safety Report 7563992-8 (Version None)
Quarter: 2011Q2

REPORT INFORMATION
  Report Type: 
  Country: None (occurrence: None)
  Receive Date: 20110622
  Receipt Date: 20110613
  Transmission Date: 20111010
  Serious: Yes (Hospitalization)
  Sender: FDA-Public Use
  Company Number: BG-ASTRAZENECA-2011SE36906

PATIENT
  Sex: Female

DRUGS (10)
  1. METOPROLOL SUCCINATE [Suspect]
     Indication: TACHYCARDIA
     Route: 048
     Dates: start: 20030101
  2. METOPROLOL SUCCINATE [Suspect]
     Route: 048
  3. METOPROLOL SUCCINATE [Suspect]
     Route: 048
  4. METOPROLOL SUCCINATE [Suspect]
     Indication: MITRAL VALVE PROLAPSE
     Route: 048
     Dates: start: 20030101
  5. METOPROLOL SUCCINATE [Suspect]
     Dosage: 75 MG+50 MG (TOTAL DAILY DOSE 125 MG)
     Route: 048
  6. METOPROLOL SUCCINATE [Suspect]
     Indication: ARRHYTHMIA
     Route: 048
     Dates: start: 20030101
  7. METOPROLOL SUCCINATE [Suspect]
     Route: 048
  8. METOPROLOL SUCCINATE [Suspect]
     Dosage: 75 MG+50 MG (TOTAL DAILY DOSE 125 MG)
     Route: 048
  9. METOPROLOL SUCCINATE [Suspect]
     Dosage: 75 MG+50 MG (TOTAL DAILY DOSE 125 MG)
     Route: 048
  10. MAPLE [Concomitant]

REACTIONS (12)
  - MYOCARDIAL ISCHAEMIA [None]
  - HOSPITALISATION [None]
  - ANGINA PECTORIS [None]
  - CONDITION AGGRAVATED [None]
  - DYSPNOEA [None]
  - TACHYCARDIA [None]
  - WEIGHT DECREASED [None]
  - MITRAL VALVE INCOMPETENCE [None]
  - HYPERTENSION [None]
  - DYSLIPIDAEMIA [None]
  - SENSE OF OPPRESSION [None]
  - VENTRICULAR EXTRASYSTOLES [None]
